FAERS Safety Report 7969696-1 (Version None)
Quarter: 2011Q4

REPORT INFORMATION
  Report Type: 
  Country: None (occurrence: None)
  Receive Date: 20111121
  Receipt Date: 20110908
  Transmission Date: 20120403
  Serious: No
  Sender: FDA-Public Use
  Company Number: 1000023740

PATIENT
  Sex: Female

DRUGS (1)
  1. VIIBRYD [Suspect]
     Dosage: 10MG (10 MG, 1 IN 1 D), ORAL
     Route: 048

REACTIONS (1)
  - VOMITING [None]
